FAERS Safety Report 19317417 (Version 1)
Quarter: 2021Q2

REPORT INFORMATION
  Report Type: Spontaneous
  Country: US (occurrence: US)
  Receive Date: 20210527
  Receipt Date: 20210527
  Transmission Date: 20210717
  Serious: Yes (Hospitalization)
  Sender: FDA-Public Use
  Company Number: US-TEVA-2021-US-1915058

PATIENT
  Age: 71 Year
  Sex: Female

DRUGS (3)
  1. TETRABENAZINE. [Interacting]
     Active Substance: TETRABENAZINE
     Indication: PRODUCT USED FOR UNKNOWN INDICATION
     Route: 065
  2. TRAMADOL. [Suspect]
     Active Substance: TRAMADOL
     Indication: PROCEDURAL PAIN
     Route: 065
  3. PIPERACILLIN/TAZOBACTAM [Concomitant]
     Active Substance: PIPERACILLIN SODIUM\TAZOBACTAM SODIUM
     Indication: PNEUMONIA ASPIRATION
     Route: 065

REACTIONS (3)
  - Tardive dyskinesia [Recovered/Resolved]
  - Drug interaction [Unknown]
  - Delirium [Recovered/Resolved]
